FAERS Safety Report 8783153 (Version 1)
Quarter: 2012Q4

REPORT INFORMATION
  Report Type: 
  Country: US (occurrence: US)
  Receive Date: 20120913
  Receipt Date: 20120913
  Transmission Date: 20130627
  Serious: No
  Sender: FDA-Public Use
  Company Number: US-VERTEX PHARMACEUTICAL INC.-AE-2012-009627

PATIENT
  Sex: Male
  Weight: 84.55 kg

DRUGS (7)
  1. INCIVEK [Suspect]
     Indication: HEPATITIS C
     Route: 048
     Dates: start: 20120517, end: 20120527
  2. INCIVEK [Suspect]
     Route: 048
     Dates: start: 20120531, end: 20120618
  3. RIBAVIRIN [Concomitant]
     Indication: HEPATITIS C
     Route: 048
     Dates: start: 20120517, end: 20120527
  4. RIBAVIRIN [Concomitant]
     Route: 048
     Dates: start: 20120531, end: 20120618
  5. PEGINTRON [Concomitant]
     Indication: HEPATITIS C
     Route: 058
     Dates: start: 20120517, end: 20120527
  6. PEGINTRON [Concomitant]
     Route: 058
     Dates: start: 20120531, end: 20120622
  7. LISINOPRIL [Concomitant]
     Indication: HYPERTENSION

REACTIONS (1)
  - Rash pruritic [Not Recovered/Not Resolved]
